FAERS Safety Report 15034114 (Version 1)
Quarter: 2018Q2

REPORT INFORMATION
  Report Type: Spontaneous
  Country: US (occurrence: US)
  Receive Date: 20180620
  Receipt Date: 20180620
  Transmission Date: 20180711
  Serious: No
  Sender: FDA-Public Use
  Company Number: US-TEVA-785379ACC

PATIENT
  Sex: Female

DRUGS (1)
  1. LIDOCAINE. [Suspect]
     Active Substance: LIDOCAINE
     Indication: SCIATICA
     Dosage: PATCH
     Route: 061
     Dates: start: 20170628, end: 20170629

REACTIONS (1)
  - Application site rash [Unknown]

NARRATIVE: CASE EVENT DATE: 20170628
